FAERS Safety Report 6834455-X (Version None)
Quarter: 2010Q3

REPORT INFORMATION
  Report Type: 
  Country: None (occurrence: None)
  Receive Date: 20100712
  Receipt Date: 20070816
  Transmission Date: 20110219
  Serious: No
  Sender: FDA-Public Use
  Company Number: US-PFIZER INC-2007034052

PATIENT
  Sex: Female
  Weight: 49.09 kg

DRUGS (11)
  1. CHANTIX [Suspect]
     Indication: SMOKING CESSATION THERAPY
     Dates: start: 20070415, end: 20070101
  2. AVAPRO [Concomitant]
  3. FELODIPINE [Concomitant]
  4. SIMVASTATIN [Concomitant]
  5. LISINOPRIL AND HYDROCHLOROTHIAZIDE [Concomitant]
  6. SYNTHROID [Concomitant]
  7. DIGITEK [Concomitant]
  8. ZETIA [Concomitant]
  9. ACETYLSALICYLIC ACID [Concomitant]
  10. SPIRIVA [Concomitant]
  11. PLAVIX [Concomitant]
     Dates: end: 20070101

REACTIONS (3)
  - CONSTIPATION [None]
  - DRUG INTOLERANCE [None]
  - NAUSEA [None]
